FAERS Safety Report 11512489 (Version 18)
Quarter: 2019Q1

REPORT INFORMATION
  Report Type: Report from Study
  Country: CA (occurrence: CA)
  Receive Date: 20150916
  Receipt Date: 20190318
  Transmission Date: 20190417
  Serious: Yes (Other)
  Sender: FDA-Public Use
  Company Number: PHHY2015CA108887

PATIENT
  Age: 70 Year
  Sex: Female
  Weight: 70 kg

DRUGS (3)
  1. SANDOSTATIN LAR DEPOT [Suspect]
     Active Substance: OCTREOTIDE ACETATE
     Indication: METASTATIC CARCINOID TUMOUR
     Dosage: 30 MG, QMO
     Route: 030
     Dates: start: 201004
  2. SANDOSTATIN [Suspect]
     Active Substance: OCTREOTIDE ACETATE
     Indication: METASTATIC CARCINOID TUMOUR
     Dosage: UNK
     Route: 058
     Dates: start: 20100225, end: 201410
  3. AMLODIPINE [Concomitant]
     Active Substance: AMLODIPINE BESYLATE
     Indication: BLOOD PRESSURE ABNORMAL
     Route: 065

REACTIONS (14)
  - Neoplasm malignant [Unknown]
  - Malignant neoplasm progression [Unknown]
  - Palpitations [Unknown]
  - Second primary malignancy [Unknown]
  - Hot flush [Unknown]
  - Body temperature decreased [Unknown]
  - Needle issue [Unknown]
  - Blood pressure systolic increased [Unknown]
  - Blood pressure increased [Unknown]
  - Respiratory rate increased [Unknown]
  - Sepsis [Unknown]
  - Liver abscess [Unknown]
  - Metastases to liver [Unknown]
  - Syringe issue [Unknown]

NARRATIVE: CASE EVENT DATE: 2011
